FAERS Safety Report 5416589-X (Version None)
Quarter: 2007Q3

REPORT INFORMATION
  Report Type: 
  Country: None (occurrence: None)
  Receive Date: 20070814
  Receipt Date: 20070814
  Transmission Date: 20080115
  Serious: Yes (Other)
  Sender: FDA-Public Use
  Company Number: None

PATIENT
  Age: 33 Year
  Sex: Female
  Weight: 88.4514 kg

DRUGS (1)
  1. JOLESSA .15MG/.03MG BARR LABORATORIES [Suspect]
     Indication: CONTRACEPTION
     Dosage: ONE PILL PER DAY PO
     Route: 048

REACTIONS (1)
  - VAGINAL HAEMORRHAGE [None]
